FAERS Safety Report 17190519 (Version 1)
Quarter: 2019Q4

REPORT INFORMATION
  Report Type: Spontaneous
  Country: US (occurrence: US)
  Receive Date: 20191223
  Receipt Date: 20191223
  Transmission Date: 20200122
  Serious: Yes (Hospitalization, Other)
  Sender: FDA-Public Use
  Company Number: US-GLAXOSMITHKLINE-US2019GSK231725

PATIENT
  Sex: Female

DRUGS (2)
  1. PREVACID [Suspect]
     Active Substance: LANSOPRAZOLE
     Indication: PRODUCT USED FOR UNKNOWN INDICATION
     Dosage: UNK, BID
     Route: 065
  2. PREVACID [Suspect]
     Active Substance: LANSOPRAZOLE
     Indication: GASTROOESOPHAGEAL REFLUX DISEASE
     Dosage: UNK UNK, BID
     Route: 065

REACTIONS (20)
  - Dysuria [Unknown]
  - Renal impairment [Unknown]
  - Pyuria [Unknown]
  - Hydronephrosis [Unknown]
  - Chronic kidney disease [Unknown]
  - Acute kidney injury [Unknown]
  - Renal cyst [Unknown]
  - Chronic kidney disease-mineral and bone disorder [Unknown]
  - Nephrolithiasis [Unknown]
  - Nephropathy [Unknown]
  - Nephrogenic anaemia [Unknown]
  - Renal transplant [Unknown]
  - Renal failure [Unknown]
  - End stage renal disease [Unknown]
  - Renal atrophy [Unknown]
  - Peritoneal dialysis [Unknown]
  - Nephrosclerosis [Unknown]
  - Proteinuria [Unknown]
  - Azotaemia [Unknown]
  - Dialysis [Unknown]
